FAERS Safety Report 21949109 (Version 1)
Quarter: 2023Q1

REPORT INFORMATION
  Report Type: Spontaneous
  Country: US (occurrence: None)
  Receive Date: 20230202
  Receipt Date: 20230202
  Transmission Date: 20230417
  Serious: Yes (Death)
  Sender: FDA-Public Use
  Company Number: None

PATIENT
  Sex: Female

DRUGS (1)
  1. SORAFENIB [Suspect]
     Active Substance: SORAFENIB
     Dosage: FREQUENCY : TWICE A DAY;?
     Route: 048
     Dates: start: 202209

REACTIONS (3)
  - Disease progression [None]
  - Acute myeloid leukaemia [None]
  - Muscle spasms [None]
